FAERS Safety Report 6327902-3 (Version None)
Quarter: 2009Q3

REPORT INFORMATION
  Report Type: 
  Country: None (occurrence: None)
  Receive Date: 20090825
  Receipt Date: 20081114
  Transmission Date: 20100115
  Serious: No
  Sender: FDA-Public Use
  Company Number: US-ABBOTT-08P-163-0487300-00

PATIENT
  Sex: Female
  Weight: 137.11 kg

DRUGS (10)
  1. SYNTHROID [Suspect]
     Indication: THYROIDECTOMY
     Route: 048
     Dates: start: 19800101, end: 19880101
  2. SYNTHROID [Suspect]
     Route: 048
     Dates: start: 19880101, end: 19890101
  3. SYNTHROID [Suspect]
     Route: 048
     Dates: start: 19890101
  4. SYNTHROID [Suspect]
     Indication: THYROIDECTOMY
     Route: 048
     Dates: start: 19880101, end: 19890101
  5. SYNTHROID [Suspect]
     Indication: THYROIDECTOMY
     Route: 048
     Dates: start: 19890101
  6. LIOTHYRONINE SODIUM [Suspect]
     Indication: THYROIDECTOMY
     Route: 048
     Dates: start: 20060101
  7. LIOTHYRONINE SODIUM [Suspect]
     Route: 048
  8. LIOTHYRONINE SODIUM [Suspect]
     Route: 048
  9. LIOTHYRONINE SODIUM [Suspect]
     Route: 048
  10. LIOTHYRONINE SODIUM [Suspect]
     Route: 048

REACTIONS (19)
  - ABNORMAL DREAMS [None]
  - CARDIAC DISORDER [None]
  - DECREASED APPETITE [None]
  - DEPRESSION [None]
  - DIARRHOEA [None]
  - HEADACHE [None]
  - HEPATIC PAIN [None]
  - HEPATOMEGALY [None]
  - HOT FLUSH [None]
  - LIVER INDURATION [None]
  - LUNG DISORDER [None]
  - MENORRHAGIA [None]
  - MENSTRUAL DISORDER [None]
  - NECK PAIN [None]
  - SENSORY DISTURBANCE [None]
  - THROAT TIGHTNESS [None]
  - TRI-IODOTHYRONINE DECREASED [None]
  - WEIGHT DECREASED [None]
  - WEIGHT INCREASED [None]
